FAERS Safety Report 4664142-8 (Version None)
Quarter: 2005Q2

REPORT INFORMATION
  Report Type: 
  Country: None (occurrence: None)
  Receive Date: 20050516
  Receipt Date: 20050516
  Transmission Date: 20051028
  Serious: Yes (Disabling)
  Sender: FDA-Public Use
  Company Number: None

PATIENT
  Sex: Female
  Weight: 59.8748 kg

DRUGS (1)
  1. TRASTUZUMAB [Suspect]
     Indication: BREAST CANCER STAGE II
     Dosage: 120MG   DAYS 1,8,15,22  INTRAVENOUS
     Route: 042
     Dates: start: 20040422, end: 20050114

REACTIONS (5)
  - CHRONIC OBSTRUCTIVE PULMONARY DISEASE [None]
  - COUGH [None]
  - EJECTION FRACTION DECREASED [None]
  - RHONCHI [None]
  - WHEEZING [None]
